FAERS Safety Report 8360627-1 (Version None)
Quarter: 2012Q2

REPORT INFORMATION
  Report Type: 
  Country: None (occurrence: None)
  Receive Date: 20120514
  Receipt Date: 20120514
  Transmission Date: 20120825
  Serious: Yes (Death)
  Sender: FDA-Public Use
  Company Number: None

PATIENT
  Sex: Male
  Weight: 77.6 kg

DRUGS (6)
  1. TAMSULOSIN HCL [Concomitant]
  2. LEVOTHYROXINE SODIUM [Concomitant]
  3. BACTRIM DS [Concomitant]
  4. BENDAMUSTINE 100 MG/VIAL CEPHALON [Suspect]
     Indication: HAIRY CELL LEUKAEMIA
     Dosage: 191MG (90MG/M2) IV
     Route: 042
     Dates: start: 20120209, end: 20120405
  5. VALACYCLOVIR HYDROCHLORIDE [Concomitant]
  6. RITUXIMAB 10 MG/ML IDEC PHARM/GENENTECH [Suspect]
     Indication: HAIRY CELL LEUKAEMIA
     Dosage: 795MG (375MG/M2) IV
     Route: 042
     Dates: start: 20120209, end: 20120404

REACTIONS (9)
  - NEUTROPENIA [None]
  - BLOOD PRODUCT TRANSFUSION DEPENDENT [None]
  - PSEUDOMONAS INFECTION [None]
  - PLEURAL EFFUSION [None]
  - NAUSEA [None]
  - DIVERTICULITIS [None]
  - DIARRHOEA [None]
  - PNEUMONIA [None]
  - BLOOD CULTURE POSITIVE [None]
